FAERS Safety Report 9616146 (Version 9)
Quarter: 2015Q3

REPORT INFORMATION
  Report Type: Report from Study
  Country: JP (occurrence: JP)
  Receive Date: 20131011
  Receipt Date: 20150828
  Transmission Date: 20151125
  Serious: Yes (Death, Life-Threatening, Hospitalization, Other)
  Sender: FDA-Public Use
  Company Number: JP-MERCK-2012SP021899

PATIENT
  Age: 63 Year
  Sex: Female
  Weight: 48 kg

DRUGS (29)
  1. DIAZOXIDE [Suspect]
     Active Substance: DIAZOXIDE
     Indication: HYPOGLYCAEMIA
     Dosage: 25MG: IN MORNING AND DAYTIME, 50MG: IN EVENING.
     Route: 048
     Dates: start: 20110120, end: 20110523
  2. GOODMIN [Concomitant]
     Active Substance: BROTIZOLAM
     Dosage: 0.25 MG, QD (DIVIDED DOSE FREQUENCY UNKNOWN)
     Route: 048
     Dates: start: 2007
  3. PREDNISOLONE. [Concomitant]
     Active Substance: PREDNISOLONE
     Indication: HYPOGLYCAEMIA
     Dosage: 2-5 MG/DAY, DIVIDED DOSE, FREQUENCY UNKNOWN, FORMULATION: POR
     Route: 048
  4. AM [Concomitant]
     Indication: ABDOMINAL DISCOMFORT
     Dosage: 3.9 G, QD
     Route: 048
     Dates: end: 20141106
  5. MAGMITT [Concomitant]
     Active Substance: MAGNESIUM OXIDE
     Indication: CONSTIPATION
     Dosage: 990 MG, QD, DIVIDED DOSE, FREQUENCY UNKNOWN
     Route: 048
     Dates: end: 20120119
  6. SALOBEL [Concomitant]
     Active Substance: ALLOPURINOL
     Indication: HYPERURICAEMIA
     Dosage: 200 MG, QD, DIVIDED DOSE FREQUENCY UNKNOWN
     Route: 048
     Dates: end: 20110119
  7. MUCOSTA [Concomitant]
     Active Substance: REBAMIPIDE
     Dosage: 50 MG, AS NEEDED, FORMULATION: POR
     Route: 048
     Dates: end: 20141106
  8. PREDNISOLONE. [Concomitant]
     Active Substance: PREDNISOLONE
     Dosage: 4-8 MG/DAY, DIVIDED DOSE FREQUENCY UNKNOWN, FORMULATION: POR
     Route: 048
  9. MYSLEE [Concomitant]
     Active Substance: ZOLPIDEM TARTRATE
     Indication: INSOMNIA
     Dosage: 10 MG, QD, DIVIDED DOSE FREQUENCY UNKNOWN
     Route: 048
     Dates: start: 2007, end: 20141106
  10. FUROSEMIDE. [Concomitant]
     Active Substance: FUROSEMIDE
     Dosage: 80-120 MG/ DAY, DIVIDED DOSE FREQUENCY UNKNOWN, FORMULATION: POR
     Route: 048
     Dates: end: 20141106
  11. ROHYPNOL [Concomitant]
     Active Substance: FLUNITRAZEPAM
     Indication: INSOMNIA
     Dosage: 2 MG, QD, DIVIDED DOSE, FREQUENCY UNKNOWN, FORMULATION POR
     Route: 048
     Dates: start: 2007, end: 20141106
  12. LUPRAC [Concomitant]
     Active Substance: TORSEMIDE
     Indication: OEDEMA
     Dosage: DIVIDED DOSE FREQUENCY UNKNOWN, 4-8 MG/DAY
     Route: 048
     Dates: end: 20141106
  13. DIAZOXIDE [Suspect]
     Active Substance: DIAZOXIDE
     Dosage: 25MG:IN MORNING,50MG IN EVENING, 75 MG PER DAY
     Route: 048
     Dates: start: 20120307, end: 20141106
  14. PARIET [Concomitant]
     Active Substance: RABEPRAZOLE SODIUM
     Dosage: 10 MG, QD (DIVIDED DOSE FREQUENCY UNKNOWN)
     Route: 048
     Dates: start: 201007
  15. LOXONIN [Concomitant]
     Active Substance: LOXOPROFEN SODIUM
     Indication: BACK PAIN
     Dosage: 120 MG,AS NEEDED, FORMULATION: POR
     Route: 048
     Dates: end: 20141106
  16. FUROSEMIDE. [Concomitant]
     Active Substance: FUROSEMIDE
     Indication: OEDEMA
     Dosage: 40-80 MG/DAY,DIVIDED DOSE FREQUENCY UNKNOWN, FORMULATION: POR
     Route: 048
  17. ASCATE [Concomitant]
     Dosage: 300 MG, QD (DIVIDED DOSE FREQUENCY UNKNOWN)
     Route: 048
     Dates: start: 2005
  18. LOXONIN [Concomitant]
     Active Substance: LOXOPROFEN SODIUM
     Indication: HEADACHE
     Dosage: DAILY DOSE UNKNOWN. AS NEEDED, 60-120 MG/DAY, FORMULATION: POR
     Route: 048
     Dates: end: 20141106
  19. MUCOSTA [Concomitant]
     Active Substance: REBAMIPIDE
     Indication: BACK PAIN
     Dosage: 200 MG, AS NEEDED, FORMULATION: POR
     Route: 048
  20. DOXAZOSIN MESYLATE. [Concomitant]
     Active Substance: DOXAZOSIN MESYLATE
     Indication: HYPERTENSION
     Dosage: 2-16 MG/DAY, DIVIDED DOSE FREQUENCY UNKNOWN, FORMULATION: POR
     Route: 048
     Dates: end: 20141106
  21. DIAZOXIDE [Suspect]
     Active Substance: DIAZOXIDE
     Dosage: 25 MG, BID
     Route: 048
     Dates: start: 20110602, end: 20120306
  22. PANALDINE [Concomitant]
     Active Substance: TICLOPIDINE HYDROCHLORIDE
     Indication: PROPHYLAXIS
     Dosage: 200 MG, QD, FREQUENCY UNKNOWN, FORMULATION: POR
     Route: 048
     Dates: end: 20141106
  23. SENNA [Concomitant]
     Active Substance: SENNA LEAF\SENNOSIDES\SENNOSIDES A AND B
     Indication: CONSTIPATION
     Dosage: 1 G, QD, DIVIDED DOSE, FREQUENCY UNKNOWN
     Route: 048
  24. MUCOSTA [Concomitant]
     Active Substance: REBAMIPIDE
     Indication: HEADACHE
     Dosage: 100 MG, AS NEEDED, FORMULATION: POR
     Route: 048
  25. RASILEZ [Concomitant]
     Active Substance: ALISKIREN
     Indication: HYPERTENSION
     Dosage: 150 MG, QD, DIVIDED DOSE FREQUENCY UNKNOWN, FORMULATION: POR
     Route: 048
     Dates: end: 20141106
  26. PREDNISOLONE. [Concomitant]
     Active Substance: PREDNISOLONE
     Dosage: 8 MG, QD, (DIVIDED DOSE FREQUENCY UNKNOWN) FORMULATION: POR
     Dates: end: 20141106
  27. BENET [Concomitant]
     Active Substance: RISEDRONATE SODIUM
     Indication: OSTEOPOROSIS PROPHYLAXIS
     Dosage: 1.75 MG, QW, DIVIDED DOSE, FREQUENCY UNKNOWN
     Route: 048
     Dates: start: 201007, end: 20141106
  28. TAKEPRON [Concomitant]
     Active Substance: LANSOPRAZOLE
     Indication: PROPHYLAXIS AGAINST GASTROINTESTINAL ULCER
     Dosage: 15 MG, QD, DIVIDED DOSE, FREQUENCY UNKNOWN
     Route: 048
     Dates: start: 201012
  29. BEZATOL SR [Concomitant]
     Active Substance: BEZAFIBRATE
     Indication: DYSLIPIDAEMIA
     Dosage: DIVIDED DOSE FREQUENCY UNKNOWN, 200-400 MG/DAY, DAILY DOSE UNKNOWN
     Route: 048
     Dates: end: 20141106

REACTIONS (13)
  - Malignant hypertension [Not Recovered/Not Resolved]
  - Fall [Recovering/Resolving]
  - Abdominal discomfort [Recovering/Resolving]
  - Subarachnoid haemorrhage [Recovered/Resolved]
  - Myocardial ischaemia [Fatal]
  - Thrombocytopenia [Recovered/Resolved]
  - Insomnia [Recovering/Resolving]
  - Lymphocyte count increased [Recovered/Resolved]
  - Dyslipidaemia [Recovered/Resolved with Sequelae]
  - Oedema [Recovering/Resolving]
  - Oedema [Recovered/Resolved]
  - Neutrophil count decreased [Recovered/Resolved]
  - Anxiety [Recovering/Resolving]

NARRATIVE: CASE EVENT DATE: 201101
